FAERS Safety Report 12451387 (Version 2)
Quarter: 2016Q3

REPORT INFORMATION
  Report Type: Spontaneous
  Country: US (occurrence: US)
  Receive Date: 20160609
  Receipt Date: 20160802
  Transmission Date: 20161109
  Serious: Yes (Life-Threatening)
  Sender: FDA-Public Use
  Company Number: US-PFIZER INC-2016292271

PATIENT
  Age: 39 Year
  Sex: Male

DRUGS (10)
  1. PROCAINAMIDE [Suspect]
     Active Substance: PROCAINAMIDE HYDROCHLORIDE
     Indication: VENTRICULAR FIBRILLATION
     Dosage: (10 VIALS, 12 VIALS, AND 11 VIALS RESPECTIVELY)
  2. EPINEPHRINE. [Suspect]
     Active Substance: EPINEPHRINE
     Indication: VENTRICULAR FIBRILLATION
     Dosage: (10 VIALS, 12 VIALS, AND 11 VIALS RESPECTIVELY)
  3. DIGIFAB [Concomitant]
     Active Substance: OVINE DIGOXIN IMMUNE FAB
     Indication: VENTRICULAR FIBRILLATION
     Dosage: (10 VIALS, 12 VIALS, AND 11VIALS RESPECTIVELY)
  4. ATROPINE SULFATE. [Suspect]
     Active Substance: ATROPINE SULFATE
     Indication: VENTRICULAR FIBRILLATION
     Dosage: (10 VIALS, 12 VIALS, AND 11 VIALS RESPECTIVELY)
  5. EPINEPHRINE. [Suspect]
     Active Substance: EPINEPHRINE
     Indication: ATRIAL TACHYCARDIA
     Dosage: UNK
  6. AMIODARONE HCL [Suspect]
     Active Substance: AMIODARONE HYDROCHLORIDE
     Indication: VENTRICULAR FIBRILLATION
     Dosage: (10 VIALS, 12 VIALS, AND 11 VIALS RESPECTIVELY)
  7. AMIODARONE HCL [Suspect]
     Active Substance: AMIODARONE HYDROCHLORIDE
     Indication: ATRIAL TACHYCARDIA
     Dosage: UNK
  8. ATROPINE SULFATE. [Suspect]
     Active Substance: ATROPINE SULFATE
     Indication: ATRIAL TACHYCARDIA
     Dosage: UNK
  9. PROCAINAMIDE [Suspect]
     Active Substance: PROCAINAMIDE HYDROCHLORIDE
     Indication: ATRIAL TACHYCARDIA
     Dosage: UNK
  10. DIGIFAB [Concomitant]
     Active Substance: OVINE DIGOXIN IMMUNE FAB
     Indication: ATRIAL TACHYCARDIA
     Dosage: UNK

REACTIONS (2)
  - Cardiac arrest [Not Recovered/Not Resolved]
  - Drug ineffective [Unknown]
